FAERS Safety Report 17917541 (Version 3)
Quarter: 2021Q3

REPORT INFORMATION
  Report Type: Report from Study
  Country: US (occurrence: US)
  Receive Date: 20200619
  Receipt Date: 20210920
  Transmission Date: 20211014
  Serious: Yes (Hospitalization)
  Sender: FDA-Public Use
  Company Number: NVSC2020US169031

PATIENT
  Age: 17 Year
  Sex: Male

DRUGS (8)
  1. PEGASPARGASE [Suspect]
     Active Substance: PEGASPARGASE
     Indication: ACUTE LYMPHOCYTIC LEUKAEMIA
     Dosage: 4200 INTERNATIONAL UNIT (DI D43)
     Route: 042
     Dates: start: 20191204
  2. THIOGUANINE [Suspect]
     Active Substance: THIOGUANINE
     Indication: ACUTE LYMPHOCYTIC LEUKAEMIA
     Dosage: 100 MILLIGRAM, QHS (DI D29?42)
     Route: 048
     Dates: start: 20200520
  3. CYCLOPHOSPHAMIDE. [Suspect]
     Active Substance: CYCLOPHOSPHAMIDE
     Indication: ACUTE LYMPHOCYTIC LEUKAEMIA
     Dosage: 1700 MILLIGRAM (DI D29)
     Route: 042
     Dates: start: 20191120
  4. INC424A [Suspect]
     Active Substance: RUXOLITINIB
     Indication: ACUTE LYMPHOCYTIC LEUKAEMIA
     Dosage: 85 MG, BID (14 DAYS ON/14 DAYS OFF)
     Route: 048
     Dates: start: 20191120, end: 20200617
  5. VINCRISTINE [Suspect]
     Active Substance: VINCRISTINE
     Indication: ACUTE LYMPHOCYTIC LEUKAEMIA
     Dosage: 1.5 MILLIGRAM (DI D43)
     Route: 042
     Dates: start: 20191204
  6. METHOTREXATE SODIUM. [Suspect]
     Active Substance: METHOTREXATE SODIUM
     Indication: ACUTE LYMPHOCYTIC LEUKAEMIA
     Dosage: 15 MILLIGRAM (DI D29,36)
     Route: 037
     Dates: start: 20191120
  7. INC424A [Suspect]
     Active Substance: RUXOLITINIB
     Dosage: 85 MG, BID (14 DAYS ON/14 DAYS OFF)
     Route: 048
     Dates: start: 20200624
  8. CYTARABINE. [Suspect]
     Active Substance: CYTARABINE
     Indication: ACUTE LYMPHOCYTIC LEUKAEMIA
     Dosage: 130 MILLIGRAM (DI D36?39)
     Route: 042
     Dates: start: 20191120

REACTIONS (1)
  - Colitis [Recovered/Resolved]

NARRATIVE: CASE EVENT DATE: 20200605
